FAERS Safety Report 4954360-3 (Version None)
Quarter: 2006Q1

REPORT INFORMATION
  Report Type: 
  Country: None (occurrence: None)
  Receive Date: 20060327
  Receipt Date: 20060316
  Transmission Date: 20060701
  Serious: Yes (Other)
  Sender: FDA-Public Use
  Company Number: PH-MERCK-0603USA03472

PATIENT
  Age: 8 Year
  Sex: Female

DRUGS (3)
  1. ELSPAR [Suspect]
     Indication: ACUTE LYMPHOCYTIC LEUKAEMIA
     Route: 058
  2. VINCRISTINE SULFATE [Suspect]
     Route: 065
  3. PREDNISOLONE [Suspect]
     Route: 065

REACTIONS (2)
  - CEREBRAL INFARCTION [None]
  - SIMPLE PARTIAL SEIZURES [None]
